FAERS Safety Report 7808585-X (Version None)
Quarter: 2011Q4

REPORT INFORMATION
  Report Type: 
  Country: None (occurrence: None)
  Receive Date: 20111012
  Receipt Date: 20111006
  Transmission Date: 20120403
  Serious: No
  Sender: FDA-Public Use
  Company Number: US-PFIZER INC-2011240078

PATIENT
  Sex: Female
  Weight: 50.794 kg

DRUGS (2)
  1. AZITHROMYCIN [Suspect]
     Indication: ROSACEA
     Dosage: UNK
  2. AZITHROMYCIN [Suspect]
     Indication: ACNE

REACTIONS (1)
  - ABDOMINAL PAIN UPPER [None]
